FAERS Safety Report 18116773 (Version 2)
Quarter: 2020Q3

REPORT INFORMATION
  Report Type: Spontaneous
  Country: CN (occurrence: CN)
  Receive Date: 20200806
  Receipt Date: 20200810
  Transmission Date: 20201103
  Serious: Yes (Death)
  Sender: FDA-Public Use
  Company Number: CN-JNJFOC-20200747128

PATIENT
  Age: 89 Year
  Sex: Female

DRUGS (2)
  1. TYLENOL ER 650MG TABLET [Suspect]
     Active Substance: ACETAMINOPHEN
     Indication: PYREXIA
     Dosage: BEFORE JUNE 17, THE PATIENT TOOK A TOTAL OF 3 BOXES OF PRODUCTS
     Route: 048
     Dates: start: 20200506
  2. CEPHALOSPORIN NOS [Concomitant]
     Active Substance: UNSPECIFIED INGREDIENT
     Indication: PYREXIA
     Route: 042

REACTIONS (3)
  - Cardiac failure [Fatal]
  - Drug ineffective [Unknown]
  - Liver injury [Fatal]

NARRATIVE: CASE EVENT DATE: 202005
